FAERS Safety Report 5709115-9 (Version None)
Quarter: 2008Q2

REPORT INFORMATION
  Report Type: 
  Country: None (occurrence: None)
  Receive Date: 20080416
  Receipt Date: 20080416
  Transmission Date: 20081010
  Serious: Yes (Other)
  Sender: FDA-Public Use
  Company Number: None

PATIENT
  Sex: Female
  Weight: 83.9154 kg

DRUGS (1)
  1. TYLENOL [Suspect]
     Indication: ARTHRALGIA
     Dosage: AS DIRECTED ON BOTTLE PO
     Route: 048
     Dates: start: 19950101, end: 20010101

REACTIONS (12)
  - ABDOMINAL DISTENSION [None]
  - ARTHRALGIA [None]
  - ARTHROPATHY [None]
  - CARDIAC DISORDER [None]
  - CONTUSION [None]
  - DRUG INEFFECTIVE [None]
  - ERYTHROPOIESIS ABNORMAL [None]
  - FEELING COLD [None]
  - GAIT DISTURBANCE [None]
  - MOVEMENT DISORDER [None]
  - RHEUMATOID ARTHRITIS [None]
  - SYSTEMIC LUPUS ERYTHEMATOSUS [None]
